FAERS Safety Report 7479606-1 (Version None)
Quarter: 2011Q2

REPORT INFORMATION
  Report Type: 
  Country: None (occurrence: None)
  Receive Date: 20110513
  Receipt Date: 20101210
  Transmission Date: 20111010
  Serious: Yes (Hospitalization)
  Sender: FDA-Public Use
  Company Number: US-BAYER-201039458NA

PATIENT
  Age: 33 Year
  Sex: Female
  Weight: 86.168 kg

DRUGS (5)
  1. MULTI-VITAMIN [Concomitant]
  2. YASMIN [Suspect]
     Indication: PRODUCT USED FOR UNKNOWN INDICATION
     Route: 048
     Dates: start: 20061001, end: 20081201
  3. HYDROCODONE BITARTRATE [Concomitant]
  4. DROSPIRENONE AND ETHINYL ESTRADIOL [Suspect]
     Indication: PRODUCT USED FOR UNKNOWN INDICATION
     Route: 048
     Dates: start: 20061001, end: 20081201
  5. IBUPROFEN [Concomitant]
     Dosage: UNK UNK, QD

REACTIONS (3)
  - DEEP VEIN THROMBOSIS [None]
  - CHEST PAIN [None]
  - PULMONARY EMBOLISM [None]
